FAERS Safety Report 7510053-X (Version None)
Quarter: 2011Q2

REPORT INFORMATION
  Report Type: 
  Country: None (occurrence: None)
  Receive Date: 20110527
  Receipt Date: 20110518
  Transmission Date: 20111010
  Serious: Yes (Hospitalization)
  Sender: FDA-Public Use
  Company Number: US-ASTRAZENECA-2010SE19398

PATIENT
  Age: 697 Month
  Sex: Male
  Weight: 74.4 kg

DRUGS (2)
  1. VICODIN [Concomitant]
     Route: 065
  2. SYMBICORT [Suspect]
     Indication: CHRONIC OBSTRUCTIVE PULMONARY DISEASE
     Dosage: 80/4.5 UG TWICE DAILY
     Route: 055
     Dates: start: 20090101

REACTIONS (3)
  - PNEUMONIA [None]
  - MALAISE [None]
  - SHOULDER OPERATION [None]
